FAERS Safety Report 23664532 (Version 1)
Quarter: 2024Q1

REPORT INFORMATION
  Report Type: Spontaneous
  Country: US (occurrence: None)
  Receive Date: 20240322
  Receipt Date: 20240322
  Transmission Date: 20240410
  Serious: Yes (Other)
  Sender: FDA-Public Use
  Company Number: None

PATIENT
  Age: 74 Year
  Sex: Female
  Weight: 79.2 kg

DRUGS (11)
  1. REPATHA [Suspect]
     Active Substance: EVOLOCUMAB
     Indication: Blood cholesterol increased
     Dosage: OTHER QUANTITY : 1 INJECTION(S);?FREQUENCY : EVERY OTHER WEEK;?
     Route: 058
     Dates: start: 20240111, end: 20240222
  2. NEXLIZET [Concomitant]
     Active Substance: BEMPEDOIC ACID\EZETIMIBE
  3. LEVOTHYROXINE [Concomitant]
     Active Substance: LEVOTHYROXINE\LEVOTHYROXINE SODIUM
  4. CARVEDILOL [Concomitant]
     Active Substance: CARVEDILOL
  5. RAMIPRIL [Concomitant]
     Active Substance: RAMIPRIL
  6. ASPIRIN [Concomitant]
     Active Substance: ASPIRIN
  7. COENZYME Q10 [Concomitant]
     Active Substance: DIETARY SUPPLEMENT\UBIDECARENONE
  8. Fish Oil/Omega [Concomitant]
  9. VITAMIN D3 [Concomitant]
     Active Substance: CHOLECALCIFEROL
  10. LEVOCETIRIZINE [Concomitant]
     Active Substance: LEVOCETIRIZINE
  11. MINERALS\VITAMINS [Concomitant]
     Active Substance: MINERALS\VITAMINS

REACTIONS (11)
  - Swelling [None]
  - Pain [None]
  - Rash [None]
  - Epistaxis [None]
  - Headache [None]
  - Muscle spasms [None]
  - Insomnia [None]
  - Fatigue [None]
  - Mood swings [None]
  - Crying [None]
  - Therapy interrupted [None]

NARRATIVE: CASE EVENT DATE: 20240222
